FAERS Safety Report 22234153 (Version 1)
Quarter: 2023Q2

REPORT INFORMATION
  Report Type: Spontaneous
  Country: US (occurrence: US)
  Receive Date: 20230420
  Receipt Date: 20230420
  Transmission Date: 20230721
  Serious: Yes (Other)
  Sender: FDA-Public Use
  Company Number: US-SANOFI-01578933

PATIENT

DRUGS (2)
  1. REZUROCK [Suspect]
     Active Substance: BELUMOSUDIL
     Dosage: UNK
  2. RUXOLITINIB [Concomitant]
     Active Substance: RUXOLITINIB
     Dosage: UNK

REACTIONS (2)
  - Endotracheal intubation [Unknown]
  - Wrong technique in product usage process [Unknown]
